FAERS Safety Report 18656479 (Version 2)
Quarter: 2021Q1

REPORT INFORMATION
  Report Type: Spontaneous
  Country: US (occurrence: US)
  Receive Date: 20201223
  Receipt Date: 20210128
  Transmission Date: 20210419
  Serious: Yes (Other)
  Sender: FDA-Public Use
  Company Number: US-PFIZER INC-2020508199

PATIENT
  Age: 55 Year
  Sex: Female

DRUGS (1)
  1. XELJANZ XR [Suspect]
     Active Substance: TOFACITINIB CITRATE
     Dosage: 11 MG

REACTIONS (7)
  - Movement disorder [Unknown]
  - Rheumatoid arthritis [Unknown]
  - Colitis ulcerative [Unknown]
  - Multiple sclerosis [Unknown]
  - Diverticulum [Unknown]
  - Product dose omission issue [Unknown]
  - Fibromyalgia [Unknown]
